FAERS Safety Report 4638528-1 (Version None)
Quarter: 2005Q2

REPORT INFORMATION
  Report Type: 
  Country: None (occurrence: None)
  Receive Date: 20050418
  Receipt Date: 20050418
  Transmission Date: 20051028
  Serious: Yes (Hospitalization)
  Sender: FDA-Public Use
  Company Number: None

PATIENT
  Age: 36 Year

DRUGS (3)
  1. PAPAVERINE COMPOUNDING [Suspect]
     Indication: ERECTILE DYSFUNCTION
     Dosage: 1 ML PRN INTRA COPR
     Route: 017
  2. PHENTOLAMIN [Suspect]
  3. PROSTAGLANDIN E [Suspect]

REACTIONS (1)
  - PRIAPISM [None]
